FAERS Safety Report 6804429 (Version 3)
Quarter: 2017Q3

REPORT INFORMATION
  Report Type: Spontaneous
  Country: AU (occurrence: AU)
  Receive Date: 20081105
  Receipt Date: 20170711
  Transmission Date: 20171128
  Serious: Yes (Hospitalization, Disabling, Other)
  Sender: FDA-Public Use
  Company Number: AU-PFIZER INC-2008090417

PATIENT
  Age: 53 Year
  Sex: Male

DRUGS (5)
  1. PANADEINE [Concomitant]
     Active Substance: ACETAMINOPHEN\CODEINE PHOSPHATE
     Indication: PAIN
     Dosage: 2 TABLETS, 3X/DAY
     Route: 048
  2. FENTANYL. [Concomitant]
     Active Substance: FENTANYL
     Indication: PAIN
     Dosage: 12 MG, 1 EVERY 3 DAYS
     Route: 061
  3. SUTENT [Suspect]
     Active Substance: SUNITINIB MALATE
     Indication: GASTROINTESTINAL STROMAL TUMOUR
     Dosage: 50 MG DAILY: 4WK ON 2WK OFF
     Route: 048
     Dates: start: 20080924, end: 20081010
  4. GLIVEC [Suspect]
     Active Substance: IMATINIB MESYLATE
     Dosage: 600 MG, DAILY
     Dates: start: 20080913
  5. GLIVEC [Suspect]
     Active Substance: IMATINIB MESYLATE
     Dosage: 400 MG, DAILY

REACTIONS (10)
  - Renal impairment [Recovered/Resolved]
  - Blood creatinine abnormal [Recovered/Resolved with Sequelae]
  - Diarrhoea [Recovered/Resolved]
  - Ascites [Recovered/Resolved with Sequelae]
  - Pleural effusion [Recovered/Resolved]
  - General physical health deterioration [Recovered/Resolved]
  - Lethargy [Recovered/Resolved with Sequelae]
  - Oedema peripheral [Recovered/Resolved with Sequelae]
  - Neoplasm progression [Recovered/Resolved]
  - Mobility decreased [Recovered/Resolved with Sequelae]

NARRATIVE: CASE EVENT DATE: 20081018
